FAERS Safety Report 17658773 (Version 36)
Quarter: 2025Q3

REPORT INFORMATION
  Report Type: Report from Study
  Country: CA (occurrence: CA)
  Receive Date: 20200413
  Receipt Date: 20250926
  Transmission Date: 20251020
  Serious: Yes (Hospitalization, Other)
  Sender: TAKEDA
  Company Number: CA-TAKEDA-2020TJP006975

PATIENT
  Age: 78 Year
  Sex: Female
  Weight: 93 kg

DRUGS (236)
  1. LANSOPRAZOLE [Suspect]
     Active Substance: LANSOPRAZOLE
     Indication: Gastrooesophageal reflux disease
  2. LANSOPRAZOLE [Suspect]
     Active Substance: LANSOPRAZOLE
  3. RISEDRONATE SODIUM [Suspect]
     Active Substance: RISEDRONATE SODIUM
     Indication: Product used for unknown indication
  4. MORPHINE HYDROCHLORIDE [Suspect]
     Active Substance: MORPHINE HYDROCHLORIDE
     Indication: Product used for unknown indication
  5. MORPHINE HYDROCHLORIDE [Suspect]
     Active Substance: MORPHINE HYDROCHLORIDE
  6. MORPHINE HYDROCHLORIDE [Suspect]
     Active Substance: MORPHINE HYDROCHLORIDE
  7. MORPHINE HYDROCHLORIDE [Suspect]
     Active Substance: MORPHINE HYDROCHLORIDE
  8. MORPHINE HYDROCHLORIDE [Suspect]
     Active Substance: MORPHINE HYDROCHLORIDE
  9. MORPHINE HYDROCHLORIDE [Suspect]
     Active Substance: MORPHINE HYDROCHLORIDE
  10. MORPHINE HYDROCHLORIDE [Suspect]
     Active Substance: MORPHINE HYDROCHLORIDE
  11. MORPHINE HYDROCHLORIDE [Suspect]
     Active Substance: MORPHINE HYDROCHLORIDE
  12. MORPHINE HYDROCHLORIDE [Suspect]
     Active Substance: MORPHINE HYDROCHLORIDE
  13. MORPHINE HYDROCHLORIDE [Suspect]
     Active Substance: MORPHINE HYDROCHLORIDE
  14. INFLUENZA VIRUS VACCINE [Suspect]
     Active Substance: INFLUENZA VIRUS VACCINE
     Indication: Immunisation
  15. INFLUENZA VIRUS VACCINE [Suspect]
     Active Substance: INFLUENZA VIRUS VACCINE
     Indication: Prophylaxis
  16. INFLUENZA VIRUS VACCINE [Suspect]
     Active Substance: INFLUENZA VIRUS VACCINE
  17. INFLUENZA VIRUS VACCINE [Suspect]
     Active Substance: INFLUENZA VIRUS VACCINE
  18. INFLUENZA VIRUS VACCINE [Suspect]
     Active Substance: INFLUENZA VIRUS VACCINE
  19. INFLUENZA VIRUS VACCINE [Suspect]
     Active Substance: INFLUENZA VIRUS VACCINE
  20. INFLUENZA VIRUS VACCINE [Suspect]
     Active Substance: INFLUENZA VIRUS VACCINE
  21. INFLUENZA VIRUS VACCINE [Suspect]
     Active Substance: INFLUENZA VIRUS VACCINE
  22. INFLUENZA VIRUS VACCINE [Suspect]
     Active Substance: INFLUENZA VIRUS VACCINE
  23. PREVACID [Suspect]
     Active Substance: LANSOPRAZOLE
     Indication: Product used for unknown indication
  24. CANDESARTAN [Suspect]
     Active Substance: CANDESARTAN
     Indication: Product used for unknown indication
     Dosage: 8 MILLIGRAM, QD
  25. CANDESARTAN [Suspect]
     Active Substance: CANDESARTAN
     Dosage: 8 MILLIGRAM, QD
  26. CANDESARTAN [Suspect]
     Active Substance: CANDESARTAN
     Dosage: 8 MILLIGRAM, QD
  27. CANDESARTAN [Suspect]
     Active Substance: CANDESARTAN
  28. CANDESARTAN [Suspect]
     Active Substance: CANDESARTAN
  29. INFLUENZA VIRUS VACCINE [Suspect]
     Active Substance: INFLUENZA VIRUS VACCINE
     Indication: Prophylaxis
  30. INFLUENZA VIRUS VACCINE [Suspect]
     Active Substance: INFLUENZA VIRUS VACCINE
  31. INFLUENZA VIRUS VACCINE [Suspect]
     Active Substance: INFLUENZA VIRUS VACCINE
  32. INFLUENZA VIRUS VACCINE [Suspect]
     Active Substance: INFLUENZA VIRUS VACCINE
  33. DEXILANT [Suspect]
     Active Substance: DEXLANSOPRAZOLE
     Indication: Gastrooesophageal reflux disease
  34. DEXILANT [Suspect]
     Active Substance: DEXLANSOPRAZOLE
  35. DEXILANT [Suspect]
     Active Substance: DEXLANSOPRAZOLE
  36. PANTOPRAZOLE [Suspect]
     Active Substance: PANTOPRAZOLE
     Indication: Immunisation
  37. PANTOPRAZOLE [Suspect]
     Active Substance: PANTOPRAZOLE
     Indication: Asthma
  38. PANTOPRAZOLE [Suspect]
     Active Substance: PANTOPRAZOLE
  39. PANTOPRAZOLE [Suspect]
     Active Substance: PANTOPRAZOLE
  40. PANTOPRAZOLE [Suspect]
     Active Substance: PANTOPRAZOLE
  41. PANTOPRAZOLE [Suspect]
     Active Substance: PANTOPRAZOLE
  42. PANTOPRAZOLE [Suspect]
     Active Substance: PANTOPRAZOLE
  43. PANTOPRAZOLE [Suspect]
     Active Substance: PANTOPRAZOLE
  44. PANTOPRAZOLE [Suspect]
     Active Substance: PANTOPRAZOLE
  45. PANTOPRAZOLE [Suspect]
     Active Substance: PANTOPRAZOLE
  46. PANTOPRAZOLE [Suspect]
     Active Substance: PANTOPRAZOLE
  47. PANTOPRAZOLE [Suspect]
     Active Substance: PANTOPRAZOLE
  48. PANTOPRAZOLE [Suspect]
     Active Substance: PANTOPRAZOLE
  49. PANTOPRAZOLE [Suspect]
     Active Substance: PANTOPRAZOLE
  50. PANTOPRAZOLE [Suspect]
     Active Substance: PANTOPRAZOLE
  51. PANTOPRAZOLE [Suspect]
     Active Substance: PANTOPRAZOLE
  52. PANTOPRAZOLE [Suspect]
     Active Substance: PANTOPRAZOLE
     Dosage: 10 MILLIGRAM, QD (1 IN 1 D)
  53. PANTOPRAZOLE [Suspect]
     Active Substance: PANTOPRAZOLE
     Dosage: 100 MILLIGRAM, QD (1 IN 1 D)
  54. PANTOPRAZOLE [Suspect]
     Active Substance: PANTOPRAZOLE
     Dosage: 08 MILLIGRAM, QD (1 IN 1 D)
  55. PANTOPRAZOLE [Suspect]
     Active Substance: PANTOPRAZOLE
     Dosage: 1 DOSAGE FORM, QD (1 IN 1 D)
  56. PANTOPRAZOLE [Suspect]
     Active Substance: PANTOPRAZOLE
     Dosage: 2 DOSAGE FORM, QD (1 IN 1 D)
  57. PANTOPRAZOLE [Suspect]
     Active Substance: PANTOPRAZOLE
  58. PANTOPRAZOLE [Suspect]
     Active Substance: PANTOPRAZOLE
  59. PANTOPRAZOLE [Suspect]
     Active Substance: PANTOPRAZOLE
  60. PANTOPRAZOLE [Suspect]
     Active Substance: PANTOPRAZOLE
  61. PANTOPRAZOLE [Suspect]
     Active Substance: PANTOPRAZOLE
  62. PANTOPRAZOLE [Suspect]
     Active Substance: PANTOPRAZOLE
  63. PANTOPRAZOLE [Suspect]
     Active Substance: PANTOPRAZOLE
  64. PANTOPRAZOLE [Suspect]
     Active Substance: PANTOPRAZOLE
  65. PANTOPRAZOLE [Suspect]
     Active Substance: PANTOPRAZOLE
  66. PANTOPRAZOLE [Suspect]
     Active Substance: PANTOPRAZOLE
  67. PANTOPRAZOLE [Suspect]
     Active Substance: PANTOPRAZOLE
  68. PANTOPRAZOLE [Suspect]
     Active Substance: PANTOPRAZOLE
  69. PANTOPRAZOLE [Suspect]
     Active Substance: PANTOPRAZOLE
  70. PANTOPRAZOLE [Suspect]
     Active Substance: PANTOPRAZOLE
  71. PANTOPRAZOLE [Suspect]
     Active Substance: PANTOPRAZOLE
  72. PANTOPRAZOLE [Suspect]
     Active Substance: PANTOPRAZOLE
  73. PANTOPRAZOLE [Suspect]
     Active Substance: PANTOPRAZOLE
  74. PANTOPRAZOLE [Suspect]
     Active Substance: PANTOPRAZOLE
  75. PANTOPRAZOLE [Suspect]
     Active Substance: PANTOPRAZOLE
  76. PANTOPRAZOLE [Suspect]
     Active Substance: PANTOPRAZOLE
  77. PANTOPRAZOLE [Suspect]
     Active Substance: PANTOPRAZOLE
  78. PANTOPRAZOLE [Suspect]
     Active Substance: PANTOPRAZOLE
  79. PANTOPRAZOLE [Suspect]
     Active Substance: PANTOPRAZOLE
  80. PANTOPRAZOLE [Suspect]
     Active Substance: PANTOPRAZOLE
  81. PANTOPRAZOLE SODIUM [Suspect]
     Active Substance: PANTOPRAZOLE SODIUM
     Indication: Product used for unknown indication
  82. PREVACID [Suspect]
     Active Substance: LANSOPRAZOLE
     Indication: Product used for unknown indication
  83. PREVACID [Suspect]
     Active Substance: LANSOPRAZOLE
  84. FLUMIST [Suspect]
     Active Substance: INFLUENZA A VIRUS A/CALIFORNIA/7/2009 (H1N1) LIVE(ATTENUATED) ANTIGEN\INFLUENZA A VIRUS A/PERTH/16/2
     Indication: Product used for unknown indication
  85. ACETAMINOPHEN [Suspect]
     Active Substance: ACETAMINOPHEN
     Indication: Product used for unknown indication
  86. ACETAMINOPHEN [Suspect]
     Active Substance: ACETAMINOPHEN
  87. ACETAMINOPHEN [Suspect]
     Active Substance: ACETAMINOPHEN
  88. ACETAMINOPHEN [Suspect]
     Active Substance: ACETAMINOPHEN
  89. ACETAMINOPHEN [Suspect]
     Active Substance: ACETAMINOPHEN
  90. ACETAMINOPHEN [Suspect]
     Active Substance: ACETAMINOPHEN
  91. ACETAMINOPHEN [Suspect]
     Active Substance: ACETAMINOPHEN
  92. ACETAMINOPHEN [Suspect]
     Active Substance: ACETAMINOPHEN
  93. ACETAMINOPHEN [Suspect]
     Active Substance: ACETAMINOPHEN
  94. ACETAMINOPHEN [Suspect]
     Active Substance: ACETAMINOPHEN
     Indication: Product used for unknown indication
  95. BUDESONIDE [Suspect]
     Active Substance: BUDESONIDE
     Indication: Product used for unknown indication
  96. BUDESONIDE [Suspect]
     Active Substance: BUDESONIDE
  97. BUDESONIDE [Suspect]
     Active Substance: BUDESONIDE
  98. BUDESONIDE\FORMOTEROL [Suspect]
     Active Substance: BUDESONIDE\FORMOTEROL
     Indication: Product used for unknown indication
     Dosage: 4 DOSAGE FORM, QD
  99. BUDESONIDE\FORMOTEROL [Suspect]
     Active Substance: BUDESONIDE\FORMOTEROL
     Dosage: 2 DOSAGE FORM, BID
  100. BUDESONIDE\FORMOTEROL [Suspect]
     Active Substance: BUDESONIDE\FORMOTEROL
     Dosage: 2 DOSAGE FORM, BID
  101. BUDESONIDE\FORMOTEROL [Suspect]
     Active Substance: BUDESONIDE\FORMOTEROL
  102. BUDESONIDE\FORMOTEROL [Suspect]
     Active Substance: BUDESONIDE\FORMOTEROL
     Dosage: 1 DOSAGE FORM, QD
  103. BUDESONIDE\FORMOTEROL [Suspect]
     Active Substance: BUDESONIDE\FORMOTEROL
     Dosage: 1 DOSAGE FORM, Q12H
  104. SYMBICORT [Suspect]
     Active Substance: BUDESONIDE\FORMOTEROL FUMARATE DIHYDRATE
     Indication: Product used for unknown indication
     Dosage: 2 DOSAGE FORM, BID
  105. QUETIAPINE FUMARATE [Suspect]
     Active Substance: QUETIAPINE FUMARATE
     Indication: Product used for unknown indication
  106. QUETIAPINE [Suspect]
     Active Substance: QUETIAPINE
     Indication: Product used for unknown indication
  107. QUETIAPINE [Suspect]
     Active Substance: QUETIAPINE
  108. ROSUVASTATIN CALCIUM [Suspect]
     Active Substance: ROSUVASTATIN CALCIUM
     Indication: Product used for unknown indication
  109. ROSUVASTATIN CALCIUM [Suspect]
     Active Substance: ROSUVASTATIN CALCIUM
  110. ROSUVASTATIN CALCIUM [Suspect]
     Active Substance: ROSUVASTATIN CALCIUM
  111. NASONEX [Suspect]
     Active Substance: MOMETASONE FUROATE
     Indication: Asthma
  112. NASONEX [Suspect]
     Active Substance: MOMETASONE FUROATE
  113. NASONEX [Suspect]
     Active Substance: MOMETASONE FUROATE
  114. NASONEX [Suspect]
     Active Substance: MOMETASONE FUROATE
  115. NASONEX [Suspect]
     Active Substance: MOMETASONE FUROATE
  116. AZITHROMYCIN [Suspect]
     Active Substance: AZITHROMYCIN
     Indication: Product used for unknown indication
  117. AZITHROMYCIN [Suspect]
     Active Substance: AZITHROMYCIN
  118. DOMPERIDONE [Suspect]
     Active Substance: DOMPERIDONE
     Indication: Product used for unknown indication
  119. DOMPERIDONE [Suspect]
     Active Substance: DOMPERIDONE
  120. JUBLIA [Suspect]
     Active Substance: EFINACONAZOLE
     Indication: Product used for unknown indication
  121. JUBLIA [Suspect]
     Active Substance: EFINACONAZOLE
  122. JUBLIA [Suspect]
     Active Substance: EFINACONAZOLE
     Route: 061
  123. JUBLIA [Suspect]
     Active Substance: EFINACONAZOLE
  124. NITROGLYCERIN [Suspect]
     Active Substance: NITROGLYCERIN
     Indication: Product used for unknown indication
  125. NITROGLYCERIN [Suspect]
     Active Substance: NITROGLYCERIN
  126. ATROVENT [Suspect]
     Active Substance: IPRATROPIUM BROMIDE
     Indication: Product used for unknown indication
  127. ATROVENT [Suspect]
     Active Substance: IPRATROPIUM BROMIDE
  128. ATROVENT [Suspect]
     Active Substance: IPRATROPIUM BROMIDE
  129. ATROVENT [Suspect]
     Active Substance: IPRATROPIUM BROMIDE
  130. LEVOTHYROXINE SODIUM [Suspect]
     Active Substance: LEVOTHYROXINE SODIUM
     Indication: Product used for unknown indication
  131. LEVOTHYROXINE SODIUM [Suspect]
     Active Substance: LEVOTHYROXINE SODIUM
  132. SYNTHROID [Suspect]
     Active Substance: LEVOTHYROXINE SODIUM
     Indication: Product used for unknown indication
  133. NUCALA [Suspect]
     Active Substance: MEPOLIZUMAB
     Indication: Asthma
  134. NUCALA [Suspect]
     Active Substance: MEPOLIZUMAB
     Indication: Asthma
  135. NUCALA [Suspect]
     Active Substance: MEPOLIZUMAB
  136. NUCALA [Suspect]
     Active Substance: MEPOLIZUMAB
  137. NUCALA [Suspect]
     Active Substance: MEPOLIZUMAB
  138. NUCALA [Suspect]
     Active Substance: MEPOLIZUMAB
  139. SINGULAIR [Suspect]
     Active Substance: MONTELUKAST SODIUM
     Indication: Asthma
  140. SINGULAIR [Suspect]
     Active Substance: MONTELUKAST SODIUM
     Dosage: 100 MILLIGRAM, QD
  141. SINGULAIR [Suspect]
     Active Substance: MONTELUKAST SODIUM
  142. SINGULAIR [Suspect]
     Active Substance: MONTELUKAST SODIUM
  143. MONTELUKAST [Suspect]
     Active Substance: MONTELUKAST
     Indication: Asthma
     Dosage: 10 MILLIGRAM, QD
  144. MONTELUKAST [Suspect]
     Active Substance: MONTELUKAST
     Dosage: 10 MILLIGRAM, QD
  145. MONTELUKAST [Suspect]
     Active Substance: MONTELUKAST
  146. MONTELUKAST [Suspect]
     Active Substance: MONTELUKAST
  147. MORPHINE SULFATE [Suspect]
     Active Substance: MORPHINE SULFATE
     Indication: Dyspnoea
  148. MORPHINE SULFATE [Suspect]
     Active Substance: MORPHINE SULFATE
  149. MORPHINE SULFATE [Suspect]
     Active Substance: MORPHINE SULFATE
  150. MORPHINE SULFATE [Suspect]
     Active Substance: MORPHINE SULFATE
  151. MORPHINE SULFATE [Suspect]
     Active Substance: MORPHINE SULFATE
  152. MORPHINE SULFATE [Suspect]
     Active Substance: MORPHINE SULFATE
  153. MORPHINE SULFATE [Suspect]
     Active Substance: MORPHINE SULFATE
  154. MORPHINE SULFATE [Suspect]
     Active Substance: MORPHINE SULFATE
  155. MORPHINE SULFATE [Suspect]
     Active Substance: MORPHINE SULFATE
  156. MORPHINE SULFATE [Suspect]
     Active Substance: MORPHINE SULFATE
  157. MORPHINE SULFATE [Suspect]
     Active Substance: MORPHINE SULFATE
     Dosage: 10 MILLIGRAM, QD
  158. MORPHINE SULFATE [Suspect]
     Active Substance: MORPHINE SULFATE
     Indication: Product used for unknown indication
  159. XOLAIR [Suspect]
     Active Substance: OMALIZUMAB
     Indication: Product used for unknown indication
  160. PREVNAR [Suspect]
     Active Substance: PNEUMOCOCCAL 7-VALENT CONJUGATE VACCINE (DIPHTHERIA CRM197 PROTEIN)
     Indication: Immunisation
  161. PRAMIPEXOLE [Suspect]
     Active Substance: PRAMIPEXOLE
     Indication: Product used for unknown indication
  162. PRAMIPEXOLE [Suspect]
     Active Substance: PRAMIPEXOLE
  163. PRAMIPEXOLE [Suspect]
     Active Substance: PRAMIPEXOLE
  164. PRAMIPEXOLE [Suspect]
     Active Substance: PRAMIPEXOLE
  165. PRAMIPEXOLE [Suspect]
     Active Substance: PRAMIPEXOLE
  166. PRAMIPEXOLE [Suspect]
     Active Substance: PRAMIPEXOLE
  167. PREGABALIN [Suspect]
     Active Substance: PREGABALIN
     Indication: Product used for unknown indication
  168. PREGABALIN [Suspect]
     Active Substance: PREGABALIN
  169. RANITIDINE [Suspect]
     Active Substance: RANITIDINE
     Indication: Influenza
  170. RANITIDINE [Suspect]
     Active Substance: RANITIDINE
     Indication: Gastrooesophageal reflux disease
  171. RANITIDINE [Suspect]
     Active Substance: RANITIDINE
  172. RANITIDINE [Suspect]
     Active Substance: RANITIDINE
  173. VENTOLIN [Suspect]
     Active Substance: ALBUTEROL SULFATE
     Indication: Asthma
  174. SENOKOT [Suspect]
     Active Substance: SENNOSIDES
     Indication: Constipation
  175. SENOKOT [Suspect]
     Active Substance: SENNOSIDES
  176. SENOKOT [Suspect]
     Active Substance: SENNOSIDES
  177. SENOKOT [Suspect]
     Active Substance: SENNOSIDES
  178. SENOKOT [Suspect]
     Active Substance: SENNOSIDES
  179. SENNOSIDES A AND B [Suspect]
     Active Substance: SENNOSIDES A AND B
     Indication: Product used for unknown indication
  180. SENNOSIDES A AND B [Suspect]
     Active Substance: SENNOSIDES A AND B
  181. SENNOSIDES A AND B [Suspect]
     Active Substance: SENNOSIDES A AND B
  182. SPIRIVA [Suspect]
     Active Substance: TIOTROPIUM BROMIDE MONOHYDRATE
     Indication: Product used for unknown indication
     Dosage: 1 DOSAGE FORM, QD
  183. SPIRIVA [Suspect]
     Active Substance: TIOTROPIUM BROMIDE MONOHYDRATE
  184. TRAZODONE [Suspect]
     Active Substance: TRAZODONE HYDROCHLORIDE
     Indication: Product used for unknown indication
  185. TRAZODONE [Suspect]
     Active Substance: TRAZODONE HYDROCHLORIDE
  186. TRAZODONE [Suspect]
     Active Substance: TRAZODONE HYDROCHLORIDE
  187. TRAZODONE [Suspect]
     Active Substance: TRAZODONE HYDROCHLORIDE
  188. TRAZODONE [Suspect]
     Active Substance: TRAZODONE HYDROCHLORIDE
     Dosage: 1 DOSAGE FORM, QD
  189. TRAZODONE [Suspect]
     Active Substance: TRAZODONE HYDROCHLORIDE
  190. VITAMIN D [Suspect]
     Active Substance: VITAMIN D NOS
     Indication: Product used for unknown indication
  191. IMOVANE [Suspect]
     Active Substance: ZOPICLONE
     Indication: Product used for unknown indication
  192. IMOVANE [Suspect]
     Active Substance: ZOPICLONE
  193. SENNA LEAF [Suspect]
     Active Substance: SENNA LEAF
     Indication: Product used for unknown indication
  194. SENNA LEAF [Suspect]
     Active Substance: SENNA LEAF
  195. TIOTROPIUM BROMIDE [Suspect]
     Active Substance: TIOTROPIUM BROMIDE
     Indication: Product used for unknown indication
  196. TIOTROPIUM BROMIDE [Suspect]
     Active Substance: TIOTROPIUM BROMIDE
  197. OMALIZUMAB [Suspect]
     Active Substance: OMALIZUMAB
     Indication: Product used for unknown indication
  198. OMALIZUMAB [Suspect]
     Active Substance: OMALIZUMAB
  199. OMALIZUMAB [Suspect]
     Active Substance: OMALIZUMAB
  200. OMALIZUMAB [Suspect]
     Active Substance: OMALIZUMAB
  201. OMALIZUMAB [Suspect]
     Active Substance: OMALIZUMAB
  202. OMALIZUMAB [Suspect]
     Active Substance: OMALIZUMAB
  203. OMALIZUMAB [Suspect]
     Active Substance: OMALIZUMAB
  204. OMALIZUMAB [Suspect]
     Active Substance: OMALIZUMAB
  205. OMALIZUMAB [Suspect]
     Active Substance: OMALIZUMAB
  206. ALBUTEROL [Suspect]
     Active Substance: ALBUTEROL
     Indication: Product used for unknown indication
  207. ALBUTEROL [Suspect]
     Active Substance: ALBUTEROL
  208. ALBUTEROL [Suspect]
     Active Substance: ALBUTEROL
  209. ALBUTEROL [Suspect]
     Active Substance: ALBUTEROL
  210. BISACODYL [Suspect]
     Active Substance: BISACODYL
     Indication: Product used for unknown indication
  211. BISACODYL [Suspect]
     Active Substance: BISACODYL
  212. BISACODYL [Suspect]
     Active Substance: BISACODYL
  213. PYRILAMINE MALEATE [Suspect]
     Active Substance: PYRILAMINE MALEATE
     Indication: Product used for unknown indication
  214. PYRILAMINE MALEATE [Suspect]
     Active Substance: PYRILAMINE MALEATE
  215. MEPYRAMINE MALEATE [Suspect]
     Active Substance: PYRILAMINE MALEATE
     Indication: Product used for unknown indication
  216. MEPYRAMINE MALEATE [Suspect]
     Active Substance: PYRILAMINE MALEATE
  217. PREVNAR 13 [Suspect]
     Active Substance: STREPTOCOCCUS PNEUMONIAE TYPE 1 CAPSULAR POLYSACCHARIDE DIPHTHERIA CRM197 PROTEIN CONJUGATE ANTIGEN\
     Indication: Immunisation
  218. NITROGLYCERIN [Suspect]
     Active Substance: NITROGLYCERIN
     Indication: Product used for unknown indication
  219. NITROGLYCERIN [Suspect]
     Active Substance: NITROGLYCERIN
  220. NITROGLYCERIN [Suspect]
     Active Substance: NITROGLYCERIN
  221. SENNOSIDES [Suspect]
     Active Substance: SENNOSIDES
     Indication: Product used for unknown indication
  222. SENNOSIDES [Suspect]
     Active Substance: SENNOSIDES
  223. PNEUMOCOCCAL VACCINE NOS [Suspect]
     Active Substance: PNEUMOCOCCAL VACCINE
     Indication: Immunisation
  224. PNEUMOCOCCAL VACCINE NOS [Suspect]
     Active Substance: PNEUMOCOCCAL VACCINE
  225. FORMOTEROL FUMARATE [Suspect]
     Active Substance: FORMOTEROL FUMARATE
     Indication: Asthma
  226. FORMOTEROL FUMARATE [Suspect]
     Active Substance: FORMOTEROL FUMARATE
  227. FORMOTEROL FUMARATE [Suspect]
     Active Substance: FORMOTEROL FUMARATE
  228. MOMETASONE FUROATE [Suspect]
     Active Substance: MOMETASONE FUROATE
     Indication: Product used for unknown indication
  229. MOMETASONE FUROATE [Suspect]
     Active Substance: MOMETASONE FUROATE
  230. BUDESONIDE [Suspect]
     Active Substance: BUDESONIDE
     Indication: Product used for unknown indication
  231. EFINACONAZOLE [Suspect]
     Active Substance: EFINACONAZOLE
     Indication: Product used for unknown indication
  232. MEPOLIZUMAB [Suspect]
     Active Substance: MEPOLIZUMAB
     Indication: Asthma
  233. ALBUTEROL SULFATE\IPRATROPIUM BROMIDE [Suspect]
     Active Substance: ALBUTEROL SULFATE\IPRATROPIUM BROMIDE
     Indication: Product used for unknown indication
  234. ROSUVASTATIN [Suspect]
     Active Substance: ROSUVASTATIN
     Indication: Product used for unknown indication
  235. GLYCOPYRRONIUM [Suspect]
     Active Substance: GLYCOPYRRONIUM
     Indication: Product used for unknown indication
  236. PULMICORT TURBUHALER [Suspect]
     Active Substance: BUDESONIDE
     Indication: Product used for unknown indication

REACTIONS (49)
  - Aspiration [Not Recovered/Not Resolved]
  - Hypoxia [Not Recovered/Not Resolved]
  - Bronchiectasis [Not Recovered/Not Resolved]
  - Blood calcium increased [Not Recovered/Not Resolved]
  - Blood test abnormal [Not Recovered/Not Resolved]
  - Bronchopulmonary aspergillosis allergic [Not Recovered/Not Resolved]
  - Bronchopulmonary aspergillosis allergic [Unknown]
  - Gastrooesophageal reflux disease [Not Recovered/Not Resolved]
  - Lung opacity [Not Recovered/Not Resolved]
  - Obstructive airways disorder [Not Recovered/Not Resolved]
  - Musculoskeletal stiffness [Not Recovered/Not Resolved]
  - Abdominal pain upper [Not Recovered/Not Resolved]
  - Abdominal pain upper [Unknown]
  - Anaemia [Not Recovered/Not Resolved]
  - Anaemia [Unknown]
  - Asthenia [Not Recovered/Not Resolved]
  - Upper respiratory tract infection [Not Recovered/Not Resolved]
  - Upper respiratory tract infection [Unknown]
  - Pneumonia [Not Recovered/Not Resolved]
  - Pulmonary fibrosis [Not Recovered/Not Resolved]
  - Asthma [Not Recovered/Not Resolved]
  - Haemoptysis [Not Recovered/Not Resolved]
  - Pleural effusion [Not Recovered/Not Resolved]
  - Rales [Not Recovered/Not Resolved]
  - Sputum discoloured [Not Recovered/Not Resolved]
  - Total lung capacity decreased [Not Recovered/Not Resolved]
  - Wheezing [Not Recovered/Not Resolved]
  - Pain [Not Recovered/Not Resolved]
  - General physical health deterioration [Not Recovered/Not Resolved]
  - Pulmonary mass [Not Recovered/Not Resolved]
  - Dyspnoea [Not Recovered/Not Resolved]
  - Oedema peripheral [Not Recovered/Not Resolved]
  - Oedema peripheral [Unknown]
  - Pyrexia [Not Recovered/Not Resolved]
  - Pyrexia [Unknown]
  - Constipation [Not Recovered/Not Resolved]
  - Fatigue [Not Recovered/Not Resolved]
  - Tremor [Not Recovered/Not Resolved]
  - Headache [Not Recovered/Not Resolved]
  - Blood creatinine increased [Not Recovered/Not Resolved]
  - Transaminases increased [Not Recovered/Not Resolved]
  - Liver function test increased [Not Recovered/Not Resolved]
  - Drug hypersensitivity [Not Recovered/Not Resolved]
  - Cough [Not Recovered/Not Resolved]
  - Lower respiratory tract infection [Not Recovered/Not Resolved]
  - Drug ineffective [Not Recovered/Not Resolved]
  - Drug ineffective [Unknown]
  - Product dose omission issue [Not Recovered/Not Resolved]
  - Pleuritic pain [Not Recovered/Not Resolved]
